FAERS Safety Report 10198736 (Version 1)
Quarter: 2014Q2

REPORT INFORMATION
  Report Type: Report from Study
  Country: US (occurrence: US)
  Receive Date: 20140527
  Receipt Date: 20140527
  Transmission Date: 20141212
  Serious: Yes (Hospitalization, Other)
  Sender: FDA-Public Use
  Company Number: US-GILEAD-2014-0103187

PATIENT
  Age: 33 Year
  Sex: Male
  Weight: 63.87 kg

DRUGS (2)
  1. SOFOSBUVIR [Suspect]
     Indication: HEPATITIS C
     Dosage: 400 MG, QD
     Route: 048
     Dates: start: 20140224
  2. SIMEPREVIR [Suspect]
     Indication: HEPATITIS C
     Dosage: 150 MG, QD
     Route: 048
     Dates: start: 20140224

REACTIONS (7)
  - Sepsis [Unknown]
  - Pyrexia [Unknown]
  - Chills [Unknown]
  - Lethargy [Unknown]
  - Headache [Unknown]
  - Vomiting [Unknown]
  - Off label use [Not Recovered/Not Resolved]
